FAERS Safety Report 22597143 (Version 1)
Quarter: 2023Q2

REPORT INFORMATION
  Report Type: Spontaneous
  Country: US (occurrence: US)
  Receive Date: 20230613
  Receipt Date: 20230613
  Transmission Date: 20230721
  Serious: Yes (Hospitalization, Other)
  Sender: FDA-Public Use
  Company Number: US-AMNEAL-2022-AMRX-04070

PATIENT
  Age: 59 Year
  Sex: Male

DRUGS (1)
  1. BACLOFEN [Suspect]
     Active Substance: BACLOFEN
     Indication: Product used for unknown indication
     Dosage: 234.7 MICROGRAM, QD
     Route: 037
     Dates: start: 20100324

REACTIONS (9)
  - Postoperative wound complication [Unknown]
  - Pain [Unknown]
  - Fatigue [Unknown]
  - Skin disorder [Unknown]
  - Movement disorder [Unknown]
  - Dizziness [Unknown]
  - Asthenia [Unknown]
  - Spinal cord infection [Recovered/Resolved]
  - Device issue [Unknown]

NARRATIVE: CASE EVENT DATE: 20221210
